FAERS Safety Report 25105291 (Version 3)
Quarter: 2025Q2

REPORT INFORMATION
  Report Type: Spontaneous
  Country: US (occurrence: None)
  Receive Date: 20250321
  Receipt Date: 20250530
  Transmission Date: 20250716
  Serious: No
  Sender: INCYTE
  Company Number: US-INCYTE CORPORATION-2025IN002784

PATIENT
  Age: 27 Year

DRUGS (3)
  1. JAKAFI [Suspect]
     Active Substance: RUXOLITINIB
     Indication: Myeloproliferative neoplasm
     Dosage: 5 MILLIGRAM, BID
  2. JAKAFI [Suspect]
     Active Substance: RUXOLITINIB
     Dosage: 5 MILLIGRAM, BID
  3. ROPEGINTERFERON ALFA-2B [Concomitant]
     Active Substance: ROPEGINTERFERON ALFA-2B
     Indication: Product used for unknown indication
     Route: 065

REACTIONS (4)
  - Accident [Unknown]
  - Wrist fracture [Unknown]
  - Off label use [Unknown]
  - Product availability issue [Unknown]
